FAERS Safety Report 14238010 (Version 1)
Quarter: 2017Q4

REPORT INFORMATION
  Report Type: Spontaneous
  Country: MY (occurrence: MY)
  Receive Date: 20171130
  Receipt Date: 20171130
  Transmission Date: 20180321
  Serious: Yes (Hospitalization, Other)
  Sender: FDA-Public Use
  Company Number: MY-INCYTE CORPORATION-2017IN010145

PATIENT

DRUGS (1)
  1. JAKAVI [Suspect]
     Active Substance: RUXOLITINIB
     Indication: MYELOFIBROSIS
     Dosage: 20 MG, BID
     Route: 065

REACTIONS (5)
  - Splenomegaly [Unknown]
  - Acute myeloid leukaemia [Unknown]
  - Anaemia [Unknown]
  - Blast cells present [Unknown]
  - White blood cell count increased [Unknown]
